FAERS Safety Report 5748800-X (Version None)
Quarter: 2008Q2

REPORT INFORMATION
  Report Type: 
  Country: None (occurrence: None)
  Receive Date: 20080521
  Receipt Date: 20080506
  Transmission Date: 20081010
  Serious: Yes (Hospitalization)
  Sender: FDA-Public Use
  Company Number: 2008001074

PATIENT
  Age: 67 Year
  Sex: Male

DRUGS (14)
  1. TARCEVA [Suspect]
     Indication: NON-SMALL CELL LUNG CANCER STAGE IV
     Dosage: 150 MG, ORAL, 100 MG, QD, ORAL
     Route: 048
     Dates: start: 20080303
  2. TARCEVA [Suspect]
     Indication: NON-SMALL CELL LUNG CANCER STAGE IV
     Dosage: 150 MG, ORAL, 100 MG, QD, ORAL
     Route: 048
     Dates: start: 20080303
  3. ASPIRIN [Concomitant]
  4. PREDNISOLONE [Concomitant]
  5. CARDURA [Concomitant]
  6. RAMIPRIL [Concomitant]
  7. ISOSORBIDE MONONITRATE [Concomitant]
  8. LIPITOR [Concomitant]
  9. FUROSEMIDE [Concomitant]
  10. LANTUS [Concomitant]
  11. INSULIN GLULISINE [Concomitant]
  12. XANAX [Concomitant]
  13. MOTILIUM [Concomitant]
  14. LANSOPRAZOLE [Concomitant]

REACTIONS (7)
  - DIARRHOEA [None]
  - HAEMOGLOBIN DECREASED [None]
  - HAEMOPTYSIS [None]
  - INFECTION [None]
  - NAUSEA [None]
  - PLATELET COUNT INCREASED [None]
  - RASH [None]
